FAERS Safety Report 18721060 (Version 3)
Quarter: 2021Q1

REPORT INFORMATION
  Report Type: Report from Study
  Country: US (occurrence: US)
  Receive Date: 20210108
  Receipt Date: 20210209
  Transmission Date: 20210419
  Serious: No
  Sender: FDA-Public Use
  Company Number: NVSC2021US001121

PATIENT
  Age: 35 Year
  Sex: Female

DRUGS (1)
  1. KESIMPTA [Suspect]
     Active Substance: OFATUMUMAB
     Indication: MULTIPLE SCLEROSIS
     Dosage: 20 MG, QMO
     Route: 058
     Dates: start: 20201217

REACTIONS (21)
  - Back pain [Unknown]
  - Acne [Unknown]
  - Injection site discomfort [Unknown]
  - Injection site reaction [Unknown]
  - Urinary tract infection [Unknown]
  - Micturition urgency [Unknown]
  - Poor quality sleep [Unknown]
  - Headache [Unknown]
  - Rhinorrhoea [Unknown]
  - Fatigue [Unknown]
  - Insomnia [Unknown]
  - Flushing [Unknown]
  - Bladder discomfort [Unknown]
  - Anxiety [Unknown]
  - Myalgia [Unknown]
  - Injection site mass [Unknown]
  - Injection site pain [Unknown]
  - Oropharyngeal discomfort [Unknown]
  - Erythema [Unknown]
  - Malaise [Unknown]
  - Influenza [Unknown]

NARRATIVE: CASE EVENT DATE: 20201217
